FAERS Safety Report 6611794-9 (Version None)
Quarter: 2010Q1

REPORT INFORMATION
  Report Type: 
  Country: None (occurrence: None)
  Receive Date: 20100303
  Receipt Date: 20100224
  Transmission Date: 20100710
  Serious: Yes (Other)
  Sender: FDA-Public Use
  Company Number: US-RB-003783-10

PATIENT
  Age: 16 Year
  Sex: Male
  Weight: 94.5 kg

DRUGS (1)
  1. MUCINEX DM [Suspect]
     Route: 048

REACTIONS (2)
  - HALLUCINATION [None]
  - NIGHTMARE [None]
